FAERS Safety Report 11199937 (Version 1)
Quarter: 2015Q2

REPORT INFORMATION
  Report Type: Report from Study
  Country: FR (occurrence: FR)
  Receive Date: 20150618
  Receipt Date: 20150618
  Transmission Date: 20150821
  Serious: Yes (Hospitalization)
  Sender: FDA-Public Use
  Company Number: FR-SHIRE-FR201505919

PATIENT
  Age: 10 Year
  Sex: Male

DRUGS (3)
  1. IDURSULFASE [Suspect]
     Active Substance: IDURSULFASE
     Dosage: 0.6 MG/KG, 1X/WEEK
     Route: 041
     Dates: start: 20100719
  2. IDURSULFASE [Suspect]
     Active Substance: IDURSULFASE
     Indication: MUCOPOLYSACCHARIDOSIS II
     Dosage: UNK UNK, UNKNOWN
     Route: 041
     Dates: start: 20080513
  3. IDURSULFASE [Suspect]
     Active Substance: IDURSULFASE
     Dosage: 0.48 MG/KG, 1X/WEEK
     Route: 041
     Dates: start: 20090715

REACTIONS (1)
  - Adenoidal disorder [Recovered/Resolved]

NARRATIVE: CASE EVENT DATE: 20141027
